FAERS Safety Report 5054951-8 (Version None)
Quarter: 2006Q3

REPORT INFORMATION
  Report Type: 
  Country: None (occurrence: None)
  Receive Date: 20060719
  Receipt Date: 20060713
  Transmission Date: 20061208
  Serious: Yes (Other)
  Sender: FDA-Public Use
  Company Number: 2006AP03232

PATIENT
  Age: 68 Year
  Weight: 50 kg

DRUGS (1)
  1. MEROPENEM [Suspect]

REACTIONS (1)
  - ANAPHYLACTIC SHOCK [None]
